FAERS Safety Report 6143242-X (Version None)
Quarter: 2009Q2

REPORT INFORMATION
  Report Type: 
  Country: None (occurrence: None)
  Receive Date: 20090403
  Receipt Date: 20090326
  Transmission Date: 20091009
  Serious: Yes (Hospitalization)
  Sender: FDA-Public Use
  Company Number: US-MERCK-0903USA05000

PATIENT
  Age: 64 Year
  Sex: Female

DRUGS (1)
  1. JANUMET [Suspect]
     Indication: BLOOD GLUCOSE
     Route: 048
     Dates: start: 20080301

REACTIONS (7)
  - ANAEMIA [None]
  - BLOOD CREATININE INCREASED [None]
  - BLOOD UREA INCREASED [None]
  - HAEMOGLOBIN DECREASED [None]
  - MALAISE [None]
  - RENAL FAILURE ACUTE [None]
  - VOLUME BLOOD DECREASED [None]
